FAERS Safety Report 7463149-5 (Version None)
Quarter: 2011Q2

REPORT INFORMATION
  Report Type: 
  Country: None (occurrence: None)
  Receive Date: 20110506
  Receipt Date: 20110504
  Transmission Date: 20111010
  Serious: Yes (Other)
  Sender: FDA-Public Use
  Company Number: US-PFIZER INC-2011096410

PATIENT
  Age: 50 Year
  Sex: Male

DRUGS (1)
  1. CELEBREX [Suspect]
     Dosage: UNK, DAILY

REACTIONS (1)
  - HAEMATOCHEZIA [None]
